FAERS Safety Report 5217966-2 (Version None)
Quarter: 2007Q1

REPORT INFORMATION
  Report Type: 
  Country: None (occurrence: None)
  Receive Date: 20070124
  Receipt Date: 20070118
  Transmission Date: 20070707
  Serious: Yes (Life-Threatening, Hospitalization)
  Sender: FDA-Public Use
  Company Number: PHHO2007CL01572

PATIENT
  Sex: Female

DRUGS (1)
  1. ZELMAC / HTF 919A [Suspect]
     Dosage: 6 MG, UNK
     Route: 048

REACTIONS (1)
  - GASTRIC OPERATION [None]
